FAERS Safety Report 8661426 (Version 4)
Quarter: 2012Q4

REPORT INFORMATION
  Report Type: Report from Study
  Country: JP (occurrence: JP)
  Receive Date: 20120712
  Receipt Date: 20120914
  Transmission Date: 20130627
  Serious: Yes (Hospitalization)
  Sender: FDA-Public Use
  Company Number: JP-MPIJNJ-2012-04723

PATIENT

DRUGS (6)
  1. VELCADE [Suspect]
     Indication: MULTIPLE MYELOMA
     Dosage: 1.3 mg/m2, Cyclic
     Route: 042
     Dates: start: 20120329, end: 20120621
  2. MELPHALAN [Suspect]
     Indication: MULTIPLE MYELOMA
     Dosage: 8 mg, UNK
     Dates: start: 20120424, end: 20120428
  3. LOXOPROFEN [Suspect]
     Indication: PRODUCT USED FOR UNKNOWN INDICATION
     Dosage: 180 mg, UNK
     Route: 048
     Dates: start: 20120417, end: 20120516
  4. PREDNISOLONE [Concomitant]
     Indication: MULTIPLE MYELOMA
  5. DEXAMETHASONE [Concomitant]
     Indication: MULTIPLE MYELOMA
  6. ZOMETA [Concomitant]
     Indication: MULTIPLE MYELOMA
     Route: 042

REACTIONS (4)
  - Gastric ulcer [Recovered/Resolved]
  - Thrombocytopenia [Recovered/Resolved]
  - Disseminated intravascular coagulation [Recovered/Resolved]
  - Febrile neutropenia [Recovered/Resolved]
